FAERS Safety Report 6112747-X (Version None)
Quarter: 2009Q1

REPORT INFORMATION
  Report Type: 
  Country: None (occurrence: None)
  Receive Date: 20090312
  Receipt Date: 20090306
  Transmission Date: 20090719
  Serious: Yes (Death)
  Sender: FDA-Public Use
  Company Number: US-ROCHE-617032

PATIENT
  Age: 38 Year
  Sex: Female

DRUGS (5)
  1. PEGASYS [Suspect]
     Indication: HEPATITIS C
     Route: 058
     Dates: start: 20081001, end: 20081204
  2. PEGASYS [Suspect]
     Route: 058
     Dates: end: 20090225
  3. RIBAVIRIN [Suspect]
     Indication: HEPATITIS C
     Dosage: 3 TABS IN AM AND 2 TABS IN PM
     Route: 065
  4. RIBAVIRIN [Suspect]
     Dosage: LOWERED DOSE; 2 TABS IN AM
     Route: 065
     Dates: start: 20081201, end: 20081201
  5. RIBAVIRIN [Suspect]
     Route: 065
     Dates: end: 20090225

REACTIONS (9)
  - ABDOMINAL DISTENSION [None]
  - ARTHRALGIA [None]
  - GASTROINTESTINAL DISORDER [None]
  - HEPATIC FAILURE [None]
  - LACTIC ACIDOSIS [None]
  - RENAL FAILURE [None]
  - RESPIRATORY TRACT INFECTION [None]
  - SEPTIC SHOCK [None]
  - UPPER GASTROINTESTINAL HAEMORRHAGE [None]
